FAERS Safety Report 16406445 (Version 2)
Quarter: 2019Q2

REPORT INFORMATION
  Report Type: Report from Study
  Country: US (occurrence: US)
  Receive Date: 20190607
  Receipt Date: 20190625
  Transmission Date: 20190711
  Serious: Yes (Other)
  Sender: FDA-Public Use
  Company Number: PHEH2019US023445

PATIENT
  Sex: Female

DRUGS (1)
  1. CIPRODEX [Suspect]
     Active Substance: CIPROFLOXACIN HYDROCHLORIDE\DEXAMETHASONE
     Indication: PRODUCT USED FOR UNKNOWN INDICATION
     Route: 065

REACTIONS (9)
  - Pancreatic neuroendocrine tumour [Unknown]
  - Tympanic membrane perforation [Unknown]
  - Rhinorrhoea [Unknown]
  - Scoliosis [Unknown]
  - Osteoporosis [Unknown]
  - Respiratory disorder [Unknown]
  - Ear pain [Unknown]
  - Dysstasia [Unknown]
  - Ear infection [Unknown]
